FAERS Safety Report 9099175 (Version 3)
Quarter: 2013Q2

REPORT INFORMATION
  Report Type: Spontaneous
  Country: US (occurrence: US)
  Receive Date: 20130214
  Receipt Date: 20130515
  Transmission Date: 20140414
  Serious: Yes (Death, Other)
  Sender: FDA-Public Use
  Company Number: US-ELI_LILLY_AND_COMPANY-US201302003125

PATIENT
  Age: 44 Year
  Sex: Male
  Weight: 198 kg

DRUGS (2)
  1. EFFIENT [Suspect]
     Indication: STENT PLACEMENT
     Dosage: 10 MG, QD
     Route: 048
  2. SIMVASTATIN [Concomitant]

REACTIONS (3)
  - Myocardial infarction [Fatal]
  - Arrhythmia [Fatal]
  - Thrombosis in device [Recovered/Resolved]
